FAERS Safety Report 5553797-1 (Version None)
Quarter: 2007Q4

REPORT INFORMATION
  Report Type: 
  Country: None (occurrence: None)
  Receive Date: 20071213
  Receipt Date: 20071207
  Transmission Date: 20080405
  Serious: Yes (Death)
  Sender: FDA-Public Use
  Company Number: TR-ELI_LILLY_AND_COMPANY-TR200712001703

PATIENT
  Sex: Male

DRUGS (3)
  1. HUMALOG MIX 75/25 [Suspect]
     Dosage: 32 IU, EACH MORNING
     Route: 058
  2. HUMALOG MIX 75/25 [Suspect]
     Dosage: 16 IU, EACH EVENING
     Route: 058
  3. ANTI-DIABETICS [Concomitant]
     Route: 048

REACTIONS (1)
  - DEATH [None]
